FAERS Safety Report 6617726-1 (Version None)
Quarter: 2010Q1

REPORT INFORMATION
  Report Type: 
  Country: None (occurrence: None)
  Receive Date: 20100308
  Receipt Date: 20100223
  Transmission Date: 20100710
  Serious: Yes (Hospitalization, Disabling, Other)
  Sender: FDA-Public Use
  Company Number: PHHY2010US07775

PATIENT
  Age: 15 Year
  Sex: Female

DRUGS (11)
  1. EXJADE [Suspect]
     Indication: SICKLE CELL ANAEMIA
     Dosage: UNK
     Route: 048
     Dates: end: 20100204
  2. EXJADE [Suspect]
     Indication: IRON OVERLOAD
  3. PREDNISONE [Concomitant]
  4. ESOMEPRAZOLE [Concomitant]
  5. MESALAMINE [Concomitant]
  6. MERCAPTOPURINE [Concomitant]
  7. METRONIDAZOLE [Concomitant]
  8. SPIRONOLACTONE [Concomitant]
  9. PENICILLIN VK [Concomitant]
  10. FOLATE SODIUM [Concomitant]
  11. URSODIOL [Concomitant]

REACTIONS (10)
  - ABDOMINAL PAIN [None]
  - ACIDOSIS [None]
  - BILIRUBIN EXCRETION DISORDER [None]
  - BLOOD BILIRUBIN INCREASED [None]
  - CHOLANGITIS SCLEROSING [None]
  - DEHYDRATION [None]
  - DRUG TOXICITY [None]
  - HEPATIC FAILURE [None]
  - LIVER DISORDER [None]
  - RENAL FAILURE ACUTE [None]
